FAERS Safety Report 4354018-8 (Version None)
Quarter: 2004Q2

REPORT INFORMATION
  Report Type: 
  Country: None (occurrence: None)
  Receive Date: 20040506
  Receipt Date: 20040427
  Transmission Date: 20050107
  Serious: Yes (Other)
  Sender: FDA-Public Use
  Company Number: JP-BRISTOL-MYERS SQUIBB COMPANY-12572897

PATIENT
  Age: 42 Year
  Sex: Male

DRUGS (6)
  1. PARAPLATIN [Suspect]
     Indication: EXTRAGONADAL PRIMARY NON-SEMINOMA STAGE III
  2. BRIPLATIN [Suspect]
     Indication: EXTRAGONADAL PRIMARY NON-SEMINOMA STAGE III
  3. IFOSFAMIDE [Suspect]
     Indication: EXTRAGONADAL PRIMARY NON-SEMINOMA STAGE III
  4. ETOPOSIDE [Suspect]
     Indication: EXTRAGONADAL PRIMARY NON-SEMINOMA STAGE III
  5. BLEOMYCIN [Suspect]
     Indication: EXTRAGONADAL PRIMARY NON-SEMINOMA STAGE III
  6. RANDA [Suspect]
     Indication: EXTRAGONADAL PRIMARY NON-SEMINOMA STAGE III

REACTIONS (4)
  - ALANINE AMINOTRANSFERASE INCREASED [None]
  - ASPARTATE AMINOTRANSFERASE INCREASED [None]
  - DEAFNESS [None]
  - QUADRIPLEGIA [None]
